FAERS Safety Report 9257528 (Version 2)
Quarter: 2013Q3

REPORT INFORMATION
  Report Type: Spontaneous
  Country: US (occurrence: US)
  Receive Date: 20130426
  Receipt Date: 20130809
  Transmission Date: 20140515
  Serious: Yes (Disabling, Other)
  Sender: FDA-Public Use
  Company Number: US-ASTRAZENECA-2013SE27499

PATIENT
  Age: 47 Year
  Sex: Female
  Weight: 83.9 kg

DRUGS (26)
  1. NEXIUM [Suspect]
     Indication: DYSPEPSIA
     Dosage: ONCE A DAY
     Route: 048
     Dates: start: 2009
  2. NEXIUM [Suspect]
     Indication: GASTROOESOPHAGEAL REFLUX DISEASE
     Dosage: ONCE A DAY
     Route: 048
     Dates: start: 2009
  3. NEXIUM [Suspect]
     Indication: GASTROOESOPHAGEAL REFLUX DISEASE
     Dosage: ONCE A DAY
     Route: 048
     Dates: start: 2009
  4. NEXIUM [Suspect]
     Indication: ULCER
     Dosage: ONCE A DAY
     Route: 048
     Dates: start: 2009
  5. NEXIUM [Suspect]
     Indication: DYSPEPSIA
     Route: 048
     Dates: start: 20101021
  6. NEXIUM [Suspect]
     Indication: GASTROOESOPHAGEAL REFLUX DISEASE
     Route: 048
     Dates: start: 20101021
  7. NEXIUM [Suspect]
     Indication: GASTROOESOPHAGEAL REFLUX DISEASE
     Route: 048
     Dates: start: 20101021
  8. NEXIUM [Suspect]
     Indication: ULCER
     Route: 048
     Dates: start: 20101021
  9. PRILOSEC [Suspect]
     Route: 048
  10. PREVACID [Suspect]
     Indication: ULCER
     Dosage: ONCE DAILY
     Route: 065
  11. PREVACID [Suspect]
     Indication: GASTROOESOPHAGEAL REFLUX DISEASE
     Dosage: ONCE DAILY
     Route: 065
  12. PREVACID [Suspect]
     Indication: GASTROOESOPHAGEAL REFLUX DISEASE
     Dosage: ONCE DAILY
     Route: 065
  13. PEPCID [Concomitant]
     Indication: DYSPEPSIA
     Dates: start: 2012
  14. PEPCID [Concomitant]
     Indication: GASTROOESOPHAGEAL REFLUX DISEASE
     Dates: start: 2012
  15. GASTER [Concomitant]
     Indication: DYSPEPSIA
     Dates: start: 2012
  16. GASTER [Concomitant]
     Indication: GASTROOESOPHAGEAL REFLUX DISEASE
     Dates: start: 2012
  17. TUMS [Concomitant]
     Indication: DYSPEPSIA
  18. TUMS [Concomitant]
     Indication: GASTROOESOPHAGEAL REFLUX DISEASE
  19. ALKA SELTZER [Concomitant]
     Indication: DYSPEPSIA
  20. ALKA SELTZER [Concomitant]
     Indication: GASTROOESOPHAGEAL REFLUX DISEASE
  21. ROLAIDS [Concomitant]
     Indication: DYSPEPSIA
  22. ROLAIDS [Concomitant]
     Indication: GASTROOESOPHAGEAL REFLUX DISEASE
  23. PREDNISONE [Concomitant]
     Route: 048
     Dates: start: 20101119
  24. PREDNISONE [Concomitant]
     Route: 048
     Dates: start: 20120802
  25. METHYLPREDNISOLONE [Concomitant]
     Dosage: USE AS DIRECTED
     Dates: start: 20101110
  26. VITAMIN D 2 [Concomitant]
     Route: 048
     Dates: start: 20101119

REACTIONS (17)
  - Swelling [Unknown]
  - Abdominal pain upper [Unknown]
  - Intervertebral disc protrusion [Unknown]
  - Osteoporosis [Unknown]
  - Bone density decreased [Unknown]
  - Multiple fractures [Unknown]
  - Vitamin D deficiency [Unknown]
  - Activities of daily living impaired [Unknown]
  - Muscle rupture [Unknown]
  - Palpitations [Unknown]
  - Arthritis [Unknown]
  - Crohn^s disease [Unknown]
  - Scoliosis [Unknown]
  - Calcium deficiency [Unknown]
  - Arthralgia [Unknown]
  - Headache [Unknown]
  - Nausea [Unknown]
